FAERS Safety Report 16798115 (Version 2)
Quarter: 2019Q4

REPORT INFORMATION
  Report Type: Spontaneous
  Country: TW (occurrence: TW)
  Receive Date: 20190912
  Receipt Date: 20191112
  Transmission Date: 20200122
  Serious: Yes (Death, Hospitalization, Other)
  Sender: FDA-Public Use
  Company Number: TW-BRISTOL-MYERS SQUIBB COMPANY-BMS-2019-088203

PATIENT
  Age: 68 Year
  Sex: Female
  Weight: 33 kg

DRUGS (2)
  1. OPDIVO [Suspect]
     Active Substance: NIVOLUMAB
     Indication: HEPATIC CANCER
     Dosage: 3 MILLIGRAM/KILOGRAM, Q2WK
     Route: 041
     Dates: start: 20190522
  2. SORAFENIB [Suspect]
     Active Substance: SORAFENIB
     Indication: HEPATIC CANCER
     Dosage: 200 MILLIGRAM, BID
     Route: 065
     Dates: start: 20190606

REACTIONS (6)
  - Chills [Unknown]
  - Pyrexia [Recovering/Resolving]
  - Rash [Recovering/Resolving]
  - Malignant neoplasm progression [Fatal]
  - Asthma [Unknown]
  - Urinary tract infection [Unknown]

NARRATIVE: CASE EVENT DATE: 20190903
